FAERS Safety Report 5444629-0 (Version None)
Quarter: 2007Q3

REPORT INFORMATION
  Report Type: 
  Country: None (occurrence: None)
  Receive Date: 20070906
  Receipt Date: 20070824
  Transmission Date: 20080115
  Serious: Yes (Disabling, Other)
  Sender: FDA-Public Use
  Company Number: JP-MERCK-0707USA05024

PATIENT
  Age: 72 Year
  Sex: Female
  Weight: 39 kg

DRUGS (14)
  1. FOSAMAX [Suspect]
     Indication: OSTEOPOROSIS
     Route: 048
     Dates: start: 20040101, end: 20070801
  2. [THERAPY UNSPECIFIED] [Concomitant]
     Route: 065
  3. CHOLECALCIFEROL AND VITAMIN A [Concomitant]
     Route: 065
  4. REMODELLIN [Suspect]
     Indication: OSTEOPOROSIS
     Route: 048
     Dates: start: 20040101
  5. CALCIUM ASPARTATE [Suspect]
     Indication: OSTEOPOROSIS
     Route: 048
     Dates: start: 20040101
  6. LORMETAZEPAM [Suspect]
     Route: 065
  7. [THERAPY UNSPECIFIED] [Suspect]
     Route: 048
  8. FOIPAN [Suspect]
     Route: 048
  9. MECOBALAMIN [Suspect]
     Route: 048
  10. LASIX [Suspect]
     Indication: HYPERTENSION
     Route: 048
  11. ALDACTONE [Suspect]
     Indication: HYPERTENSION
     Route: 048
  12. KETOPROFEN [Concomitant]
     Route: 061
  13. RESTAMIN [Concomitant]
     Route: 061
  14. ISODINE [Concomitant]
     Route: 048

REACTIONS (4)
  - BRAIN NEOPLASM [None]
  - HIP FRACTURE [None]
  - OSTEOMYELITIS [None]
  - OSTEONECROSIS [None]
